FAERS Safety Report 4907704-2 (Version None)
Quarter: 2006Q1

REPORT INFORMATION
  Report Type: 
  Country: None (occurrence: None)
  Receive Date: 20060207
  Receipt Date: 20060130
  Transmission Date: 20060701
  Serious: Yes (Death)
  Sender: FDA-Public Use
  Company Number: 2006BI001641

PATIENT
  Age: 76 Year
  Sex: Female
  Weight: 77.1115 kg

DRUGS (3)
  1. AMEVIVE [Suspect]
     Indication: PSORIASIS
     Dosage: 15 MG; QW; IM
     Route: 030
     Dates: start: 20040909
  2. ANTI-HYPERTENSIVE THERAPY [Concomitant]
  3. LIPID LOWERING AGENTS [Concomitant]

REACTIONS (1)
  - DEATH [None]
